FAERS Safety Report 22384260 (Version 1)
Quarter: 2023Q2

REPORT INFORMATION
  Report Type: Spontaneous
  Country: CN (occurrence: CN)
  Receive Date: 20230530
  Receipt Date: 20230530
  Transmission Date: 20230721
  Serious: Yes (Hospitalization)
  Sender: FDA-Public Use
  Company Number: CN-PFIZER INC-PV202300093115

PATIENT
  Age: 59 Year
  Sex: Male
  Weight: 76.6 kg

DRUGS (4)
  1. EPIRUBICIN [Suspect]
     Active Substance: EPIRUBICIN
     Indication: Rectal cancer
     Dosage: 120 MG(EPIRUBICIN HYDROCHLORIDE FOR INJECTION 120MG+0.9% SODIUM CHLORIDE INJECTION 100ML Q3W IVGTT)
     Route: 041
     Dates: start: 20230330, end: 20230330
  2. KEYTRUDA [Suspect]
     Active Substance: PEMBROLIZUMAB
     Indication: Rectal cancer
     Dosage: 200 MG, (^PEMBROLIZUMAB INJECTION 200 MG + 0.9% SODIUM CHLORIDE INJECTION 100ML Q3W IVGTT)
     Route: 041
     Dates: start: 20230331, end: 20230427
  3. SODIUM CHLORIDE [Concomitant]
     Active Substance: SODIUM CHLORIDE
     Indication: Vehicle solution use
     Dosage: 100 ML, 1X/DAY
     Route: 041
     Dates: start: 20230330, end: 20230330
  4. SODIUM CHLORIDE [Concomitant]
     Active Substance: SODIUM CHLORIDE
     Dosage: 100 ML, ONCE  EVERY 21 DAYS
     Route: 041
     Dates: start: 20230331, end: 20230427

REACTIONS (2)
  - Myocardial necrosis marker increased [Recovering/Resolving]
  - Off label use [Unknown]

NARRATIVE: CASE EVENT DATE: 20230420
